FAERS Safety Report 4340875-8 (Version None)
Quarter: 2004Q2

REPORT INFORMATION
  Report Type: 
  Country: None (occurrence: None)
  Receive Date: 20040414
  Receipt Date: 20040402
  Transmission Date: 20050107
  Serious: Yes (Disabling)
  Sender: FDA-Public Use
  Company Number: TCI2003A04201

PATIENT
  Age: 65 Year
  Sex: Male

DRUGS (5)
  1. ACTOS            (PIOGLITAZONE) [Suspect]
     Indication: INSULIN RESISTANT DIABETES
     Dosage: 30 MG (30 MG, 1 IN 1 D; PER ORAL
     Route: 048
     Dates: start: 20000626
  2. GLIMICRON (GLICLAZIDE) [Suspect]
     Indication: INSULIN RESISTANT DIABETES
     Dosage: UNK; PER ORAL; (SEE IMAGE)
     Route: 048
     Dates: start: 19990419, end: 20000226
  3. GLIMICRON (GLICLAZIDE) [Suspect]
     Indication: INSULIN RESISTANT DIABETES
     Dosage: UNK; PER ORAL; (SEE IMAGE)
     Route: 048
     Dates: start: 20000227, end: 20000625
  4. GLIMICRON (GLICLAZIDE) [Suspect]
     Indication: INSULIN RESISTANT DIABETES
     Dosage: UNK; PER ORAL; (SEE IMAGE)
     Route: 048
     Dates: start: 20000626
  5. PICOBEN (SODIUM PICOSULFATE) [Suspect]
     Dosage: 5 MG (5 MG, 1 D); PER ORAL
     Route: 048

REACTIONS (1)
  - HEPATIC NEOPLASM MALIGNANT [None]
